FAERS Safety Report 4721643-1 (Version None)
Quarter: 2005Q3

REPORT INFORMATION
  Report Type: 
  Country: None (occurrence: None)
  Receive Date: 20050721
  Receipt Date: 20050201
  Transmission Date: 20060218
  Serious: No
  Sender: FDA-Public Use
  Company Number: US-BRISTOL-MYERS SQUIBB COMPANY-12844460

PATIENT
  Age: 89 Year
  Sex: Female
  Weight: 54 kg

DRUGS (2)
  1. COUMADIN [Suspect]
     Indication: COAGULOPATHY
     Dosage: INCREASED TO TWO 1 MG TABLETS DAILY AFTER 2 WEEKS OF TREATMENT
     Route: 048
     Dates: start: 20040101, end: 20050101
  2. DILTIAZEM HCL [Concomitant]

REACTIONS (2)
  - BLISTER [None]
  - RASH PRURITIC [None]
